FAERS Safety Report 4313425-X (Version None)
Quarter: 2004Q1

REPORT INFORMATION
  Report Type: 
  Country: None (occurrence: None)
  Receive Date: 20040305
  Receipt Date: 20040305
  Transmission Date: 20041129
  Serious: Yes (Hospitalization)
  Sender: FDA-Public Use
  Company Number: None

PATIENT
  Age: 71 Year
  Sex: Female
  Weight: 60.782 kg

DRUGS (4)
  1. PLATINOL [Suspect]
     Indication: NON-SMALL CELL LUNG CANCER
     Dosage: PLATINOL 50MG/M2 D1, 8, 29, 36
     Dates: start: 20041222, end: 20040119
  2. ETOPOSIDE [Suspect]
     Indication: NON-SMALL CELL LUNG CANCER
     Dosage: VP-16 50 MG /M2 IVD 1-5 29-33
     Route: 042
     Dates: start: 20041222, end: 20040119
  3. RADIATION [Concomitant]
  4. CHEMOTHERAPY [Concomitant]

REACTIONS (11)
  - ASTHENIA [None]
  - DEHYDRATION [None]
  - FUNGAL INFECTION [None]
  - GAIT DISTURBANCE [None]
  - MARKEDLY REDUCED DIETARY INTAKE [None]
  - ODYNOPHAGIA [None]
  - OESOPHAGEAL PAIN [None]
  - OESOPHAGITIS [None]
  - PAIN [None]
  - VOMITING [None]
  - WEIGHT DECREASED [None]
